FAERS Safety Report 10636566 (Version 2)
Quarter: 2014Q4

REPORT INFORMATION
  Report Type: Spontaneous
  Country: FI (occurrence: FI)
  Receive Date: 20141208
  Receipt Date: 20141208
  Transmission Date: 20150529
  Serious: Yes (Other)
  Sender: FDA-Public Use
  Company Number: FI-ROCHE-1493236

PATIENT
  Age: 29 Year
  Sex: Female

DRUGS (1)
  1. MABTHERA [Suspect]
     Active Substance: RITUXIMAB
     Indication: ANTI-NEUTROPHIL CYTOPLASMIC ANTIBODY POSITIVE VASCULITIS
     Dosage: 1000 MG TWICE
     Route: 042

REACTIONS (3)
  - Subcutaneous abscess [Not Recovered/Not Resolved]
  - Subcutaneous abscess [Unknown]
  - Acne [Unknown]

NARRATIVE: CASE EVENT DATE: 201411
